FAERS Safety Report 9970811 (Version 1)
Quarter: 2014Q1

REPORT INFORMATION
  Report Type: Spontaneous
  Country: US (occurrence: None)
  Receive Date: 20140305
  Receipt Date: 20140305
  Transmission Date: 20141002
  Serious: No
  Sender: FDA-Public Use
  Company Number: None

PATIENT
  Age: 32 Year
  Sex: Female
  Weight: 63.5 kg

DRUGS (4)
  1. AZITHROMYCIN [Suspect]
     Indication: PERTUSSIS
     Dosage: 2 PILLS, 2 DAY1,1 DAY 2-5
     Route: 048
     Dates: start: 20140224, end: 20140228
  2. ADVIL [Concomitant]
  3. ZANTAC [Concomitant]
  4. BENEDRYL [Concomitant]

REACTIONS (9)
  - Dysgeusia [None]
  - Diarrhoea [None]
  - No therapeutic response [None]
  - Cough [None]
  - Throat tightness [None]
  - Dizziness [None]
  - Loss of consciousness [None]
  - Hypoaesthesia [None]
  - Burning sensation [None]
